FAERS Safety Report 6893214-2 (Version None)
Quarter: 2010Q3

REPORT INFORMATION
  Report Type: 
  Country: None (occurrence: None)
  Receive Date: 20100731
  Receipt Date: 20090630
  Transmission Date: 20110219
  Serious: No
  Sender: FDA-Public Use
  Company Number: US-PFIZER INC-2009214702

PATIENT
  Sex: Female
  Weight: 68 kg

DRUGS (6)
  1. SULFASALAZINE [Suspect]
     Indication: COLITIS ULCERATIVE
     Dosage: 1000 MG, 2X/DAY
     Dates: start: 20090401
  2. LIPITOR [Concomitant]
     Dosage: UNK
  3. LOTREL [Concomitant]
     Dosage: UNK
  4. ATENOLOL [Concomitant]
     Dosage: UNK
  5. PROVERA [Concomitant]
     Dosage: UNK
  6. CENESTIN [Concomitant]
     Dosage: UNK

REACTIONS (2)
  - ALOPECIA [None]
  - BACK PAIN [None]
